FAERS Safety Report 4417469-9 (Version None)
Quarter: 2004Q3

REPORT INFORMATION
  Report Type: 
  Country: None (occurrence: None)
  Receive Date: 20040803
  Receipt Date: 20040722
  Transmission Date: 20050211
  Serious: Yes (Hospitalization)
  Sender: FDA-Public Use
  Company Number: T02-USA-02461-01

PATIENT
  Age: 1 Day
  Sex: Female
  Weight: 0.775 kg

DRUGS (6)
  1. INFASURF PRESERVATIVE FREE [Suspect]
     Indication: NEONATAL RESPIRATORY DISTRESS SYNDROME
     Dates: start: 20021021, end: 20021022
  2. AMPICILLIN [Concomitant]
  3. CLAFORAN [Concomitant]
  4. DOBUTAMINE [Concomitant]
  5. CAFCIT (CAFFEINE CITRATE) [Concomitant]
  6. FENTANYL [Concomitant]

REACTIONS (19)
  - ABDOMINAL DISTENSION [None]
  - ALKALOSIS [None]
  - ATELECTASIS NEONATAL [None]
  - BODY TEMPERATURE DECREASED [None]
  - HYPERBILIRUBINAEMIA NEONATAL [None]
  - HYPERMAGNESAEMIA [None]
  - HYPOALBUMINAEMIA [None]
  - LUNG DISORDER [None]
  - LUNG INFILTRATION [None]
  - METABOLIC ACIDOSIS [None]
  - NEONATAL DISORDER [None]
  - NEONATAL HYPONATRAEMIA [None]
  - NEONATAL HYPOTENSION [None]
  - NEONATAL RESPIRATORY FAILURE [None]
  - OSTEOPENIA [None]
  - PNEUMOTHORAX [None]
  - RETINOPATHY OF PREMATURITY [None]
  - SEPSIS NEONATAL [None]
  - STAPHYLOCOCCAL SEPSIS [None]
